FAERS Safety Report 14655377 (Version 2)
Quarter: 2018Q1

REPORT INFORMATION
  Report Type: Spontaneous
  Country: US (occurrence: US)
  Receive Date: 20180319
  Receipt Date: 20180326
  Transmission Date: 20180509
  Serious: Yes (Other)
  Sender: FDA-Public Use
  Company Number: US-NEPHRON STERILE COMPOUNDING CENTER-2044074

PATIENT
  Age: 34 Year
  Sex: Female
  Weight: 54.09 kg

DRUGS (7)
  1. ZOFRAN [Concomitant]
     Active Substance: ONDANSETRON HYDROCHLORIDE
     Dates: start: 20180310, end: 20180310
  2. SUGAMMADEX [Concomitant]
     Active Substance: SUGAMMADEX
     Dates: start: 20180310, end: 20180310
  3. SEVOFLURANE. [Concomitant]
     Active Substance: SEVOFLURANE
     Dates: start: 20180310, end: 20180310
  4. DECADRON [Concomitant]
     Active Substance: DEXAMETHASONE
     Dates: start: 20180310, end: 20180310
  5. PROPOFOL. [Concomitant]
     Active Substance: PROPOFOL
     Dates: start: 20180310, end: 20180310
  6. ROCURONIUM BROMIDE INJECTION 50MG/5ML (10MG/ML) [Suspect]
     Active Substance: ROCURONIUM BROMIDE
     Indication: UTERINE DILATION AND CURETTAGE
     Route: 040
     Dates: start: 20180310, end: 20180310
  7. LIDOCAINE. [Concomitant]
     Active Substance: LIDOCAINE
     Dates: start: 20180310, end: 20180310

REACTIONS (1)
  - Drug ineffective [Recovered/Resolved]

NARRATIVE: CASE EVENT DATE: 20180310
